FAERS Safety Report 6251880-9 (Version None)
Quarter: 2009Q2

REPORT INFORMATION
  Report Type: 
  Country: None (occurrence: None)
  Receive Date: 20090630
  Receipt Date: 20090626
  Transmission Date: 20091009
  Serious: Yes (Other)
  Sender: FDA-Public Use
  Company Number: US-GILEAD-2009-0022527

PATIENT
  Sex: Female
  Weight: 73.094 kg

DRUGS (24)
  1. LETAIRIS [Suspect]
     Indication: PULMONARY ARTERIAL HYPERTENSION
     Route: 048
     Dates: start: 20090520
  2. COUMADIN [Concomitant]
  3. OXYGEN [Concomitant]
  4. ALBUTEROL [Concomitant]
  5. SPIRONOLACTONE [Concomitant]
  6. LASIX [Concomitant]
  7. REVATIO [Concomitant]
  8. LEVAQUIN [Concomitant]
  9. PULMICORT-100 [Concomitant]
  10. NORVASC [Concomitant]
  11. PROCARDIA [Concomitant]
  12. ZETIA [Concomitant]
  13. NEVANAC [Concomitant]
  14. OMNIPRED [Concomitant]
  15. VIGAMOX [Concomitant]
  16. XALATAN [Concomitant]
  17. PREVACID [Concomitant]
  18. DOXYCYCLINE [Concomitant]
  19. LORATADINE [Concomitant]
  20. CELEBREX [Concomitant]
  21. TYLENOL (CAPLET) [Concomitant]
  22. CALCIUM [Concomitant]
  23. SOY CONCENTRATE [Concomitant]
  24. MULTI-VITAMIN [Concomitant]

REACTIONS (3)
  - FATIGUE [None]
  - HYPOTENSION [None]
  - JOINT SWELLING [None]
